FAERS Safety Report 5467704-3 (Version None)
Quarter: 2007Q3

REPORT INFORMATION
  Report Type: 
  Country: None (occurrence: None)
  Receive Date: 20070925
  Receipt Date: 20070917
  Transmission Date: 20080115
  Serious: Yes (Hospitalization)
  Sender: FDA-Public Use
  Company Number: US-ELI_LILLY_AND_COMPANY-US200708000832

PATIENT
  Age: 60 Year
  Sex: Female

DRUGS (8)
  1. GLUCOPHAGE [Concomitant]
     Dosage: UNK, UNKNOWN
  2. ACTOS [Concomitant]
     Dosage: UNK, UNKNOWN
  3. DYAZIDE [Concomitant]
     Dosage: UNK, UNKNOWN
  4. LISINOPRIL [Concomitant]
     Dosage: UNK, UNKNOWN
  5. NORVASC [Concomitant]
     Dosage: UNK, UNKNOWN
  6. TOPROL-XL [Concomitant]
     Dosage: UNK, UNKNOWN
  7. LOVASTATIN [Concomitant]
     Dosage: UNK, UNKNOWN
  8. BYETTA [Suspect]
     Dosage: 5 UG, UNK
     Route: 058
     Dates: start: 20070802, end: 20070802

REACTIONS (1)
  - ATRIAL FIBRILLATION [None]
